FAERS Safety Report 5241908-7 (Version None)
Quarter: 2007Q1

REPORT INFORMATION
  Report Type: 
  Country: None (occurrence: None)
  Receive Date: 20070220
  Receipt Date: 20070206
  Transmission Date: 20070707
  Serious: Yes (Hospitalization)
  Sender: FDA-Public Use
  Company Number: US-SHR-US-2007-004287

PATIENT
  Age: 57 Year
  Sex: Female

DRUGS (4)
  1. BETASERON [Suspect]
     Dosage: 2 MIU, EVERY 2D
     Route: 058
     Dates: start: 20051006, end: 20051010
  2. BETASERON [Suspect]
     Dosage: 8 MIU, EVERY 2D
     Route: 058
     Dates: start: 20051024, end: 20051231
  3. BETASERON [Suspect]
     Dosage: 8 MIU, EVERY 2D
     Route: 058
     Dates: start: 20060203, end: 20060225
  4. BETASERON [Suspect]
     Dosage: 8 MIU, EVERY 2D
     Route: 058
     Dates: start: 20070114, end: 20070120

REACTIONS (3)
  - MULTIPLE SCLEROSIS RELAPSE [None]
  - PNEUMONIA [None]
  - RENAL FAILURE ACUTE [None]
